FAERS Safety Report 8767307 (Version 1)
Quarter: 2012Q4

REPORT INFORMATION
  Report Type: 
  Country: JP (occurrence: JP)
  Receive Date: 20120904
  Receipt Date: 20120904
  Transmission Date: 20130627
  Serious: No
  Sender: FDA-Public Use
  Company Number: PHHY2012JP076440

PATIENT
  Sex: Male

DRUGS (3)
  1. TASIGNA [Suspect]
     Indication: CHRONIC MYELOID LEUKAEMIA
     Dosage: 600 mg, UNK
     Route: 048
     Dates: start: 20120823
  2. WARFARIN [Suspect]
     Dosage: UNK
  3. ASPIRIN [Concomitant]
     Route: 048

REACTIONS (1)
  - Eye haemorrhage [Recovered/Resolved]
